FAERS Safety Report 9997546 (Version 1)
Quarter: 2014Q1

REPORT INFORMATION
  Report Type: Spontaneous
  Country: US (occurrence: None)
  Receive Date: 20140304
  Receipt Date: 20140304
  Transmission Date: 20141002
  Serious: Yes (Hospitalization, Other)
  Sender: FDA-Public Use
  Company Number: RB-57222-2013

PATIENT
  Sex: Male

DRUGS (4)
  1. SUBOXONE 8 MG [Suspect]
     Indication: DRUG DEPENDENCE
     Route: 064
     Dates: start: 201210
  2. BUPRENORPHINE 8 MG [Suspect]
     Indication: DRUG DEPENDENCE
     Route: 063
     Dates: end: 20130730
  3. WELLBUTRIN [Suspect]
     Indication: DEPRESSION
     Route: 064
     Dates: start: 201210, end: 20130730
  4. NICOTINE [Suspect]
     Indication: NICOTINE DEPENDENCE
     Dosage: TAKING 4-5 CIGARETTES DAILY. THE MOTHER WAS SMOKING 4-5 CIGARETTES DAILY TRANSMAMMARY
     Route: 064
     Dates: start: 201210, end: 20130730

REACTIONS (3)
  - Tremor neonatal [None]
  - Foetal exposure during pregnancy [None]
  - Exposure during breast feeding [None]
